FAERS Safety Report 12588053 (Version 4)
Quarter: 2017Q3

REPORT INFORMATION
  Report Type: Spontaneous
  Country: US (occurrence: US)
  Receive Date: 20160725
  Receipt Date: 20170919
  Transmission Date: 20171127
  Serious: Yes (Hospitalization, Other)
  Sender: FDA-Public Use
  Company Number: US-SAOL THERAPEUTICS-2016SAO00250

PATIENT
  Age: 50 Year
  Sex: Male
  Weight: 120.18 kg

DRUGS (2)
  1. BACLOFEN. [Suspect]
     Active Substance: BACLOFEN
     Indication: PAIN
     Route: 037
  2. BACLOFEN. [Suspect]
     Active Substance: BACLOFEN
     Dosage: 725 ?G, \DAY

REACTIONS (3)
  - Seizure [Unknown]
  - Off label use [Unknown]
  - Lethargy [Unknown]

NARRATIVE: CASE EVENT DATE: 20160710
